FAERS Safety Report 15168236 (Version 2)
Quarter: 2018Q3

REPORT INFORMATION
  Report Type: Spontaneous
  Country: US (occurrence: US)
  Receive Date: 20180719
  Receipt Date: 20180822
  Transmission Date: 20181010
  Serious: Yes (Other)
  Sender: FDA-Public Use
  Company Number: US-009507513-1807USA005986

PATIENT
  Age: 42 Year
  Sex: Male

DRUGS (14)
  1. PREVYMIS [Suspect]
     Active Substance: LETERMOVIR
     Dosage: 480 MG, DAILY
     Route: 048
  2. FOSCARNET SODIUM. [Concomitant]
     Active Substance: FOSCARNET SODIUM
     Indication: CYTOMEGALOVIRUS VIRAEMIA
  3. METHYLPREDNISOLONE. [Concomitant]
     Active Substance: METHYLPREDNISOLONE
  4. INSULIN [Concomitant]
     Active Substance: INSULIN NOS
  5. FUROSEMIDE. [Concomitant]
     Active Substance: FUROSEMIDE
  6. SPIRONOLACTONE. [Concomitant]
     Active Substance: SPIRONOLACTONE
  7. TACROLIMUS. [Concomitant]
     Active Substance: TACROLIMUS
  8. CARVEDILOL. [Concomitant]
     Active Substance: CARVEDILOL
  9. OLANZAPINE. [Concomitant]
     Active Substance: OLANZAPINE
  10. PREVYMIS [Suspect]
     Active Substance: LETERMOVIR
     Indication: CYTOMEGALOVIRUS VIRAEMIA
     Dosage: 480 MG, DAILY
     Route: 048
  11. FILGRASTIM [Concomitant]
     Active Substance: FILGRASTIM
  12. ERGOCALCIFEROL. [Concomitant]
     Active Substance: ERGOCALCIFEROL
  13. VORICONAZOLE. [Concomitant]
     Active Substance: VORICONAZOLE
     Dosage: 1.9 MICRO?G/ML, UNK
  14. ACYCLOVIR. [Concomitant]
     Active Substance: ACYCLOVIR
     Dosage: UNK

REACTIONS (4)
  - Drug-induced liver injury [Unknown]
  - Transaminases increased [Unknown]
  - Off label use [Unknown]
  - Hepatotoxicity [Unknown]
